FAERS Safety Report 20553714 (Version 1)
Quarter: 2022Q1

REPORT INFORMATION
  Report Type: Spontaneous
  Country: DE (occurrence: DE)
  Receive Date: 20220304
  Receipt Date: 20220304
  Transmission Date: 20220423
  Serious: Yes (Hospitalization)
  Sender: FDA-Public Use
  Company Number: DE-MYLANLABS-2022M1017316

PATIENT
  Age: 31 Year
  Sex: Male

DRUGS (10)
  1. CLOZAPINE [Suspect]
     Active Substance: CLOZAPINE
     Indication: Schizophrenia
     Dosage: UNK, QD, (50-50-100 MG/DAY (DISCONTINUED))
     Route: 065
     Dates: end: 2015
  2. CLOZAPINE [Suspect]
     Active Substance: CLOZAPINE
     Dosage: UNK (STARTED AGAIN UNDER THE SUPERVISION (DISCONTINUED AGAIN))
     Route: 065
     Dates: start: 2018, end: 2018
  3. CLOZAPINE [Suspect]
     Active Substance: CLOZAPINE
     Dosage: UNK (RESTARTED, BUT EVENTUALLY COMBINED WITH AMISULPRIDE)
     Route: 065
  4. CLOZAPINE [Suspect]
     Active Substance: CLOZAPINE
     Dosage: 100 MILLIGRAM, QD
     Route: 065
     Dates: start: 2019
  5. CLOZAPINE [Suspect]
     Active Substance: CLOZAPINE
     Dosage: 75 MILLIGRAM (DOSE REDUCED)
     Route: 065
     Dates: start: 2019
  6. CLOZAPINE [Suspect]
     Active Substance: CLOZAPINE
     Dosage: 50 MILLIGRAM, QD
     Route: 065
     Dates: start: 2019, end: 201909
  7. AMISULPRIDE [Suspect]
     Active Substance: AMISULPRIDE
     Indication: Schizophrenia
     Dosage: 300 MILLIGRAM, QD
     Route: 065
  8. CARIPRAZINE [Concomitant]
     Active Substance: CARIPRAZINE
     Indication: Schizophrenia
     Dosage: 1.5 MILLIGRAM, QD
     Route: 065
     Dates: start: 2019
  9. CARIPRAZINE [Concomitant]
     Active Substance: CARIPRAZINE
     Dosage: 3 MILLIGRAM, QD
     Route: 065
  10. CARIPRAZINE [Concomitant]
     Active Substance: CARIPRAZINE
     Dosage: 4.5 MILLIGRAM, QD
     Route: 065

REACTIONS (2)
  - Drug ineffective [Unknown]
  - Rebound effect [Unknown]

NARRATIVE: CASE EVENT DATE: 20150101
